FAERS Safety Report 18809658 (Version 1)
Quarter: 2021Q1

REPORT INFORMATION
  Report Type: Spontaneous
  Country: HR (occurrence: HR)
  Receive Date: 20210129
  Receipt Date: 20210129
  Transmission Date: 20210419
  Serious: Yes (Other)
  Sender: FDA-Public Use
  Company Number: HR-TEVA-2021-HR-1873059

PATIENT
  Sex: Female

DRUGS (4)
  1. PAROXETINE HYDROCHLORIDE. [Suspect]
     Active Substance: PAROXETINE HYDROCHLORIDE
     Route: 048
     Dates: start: 20201211, end: 20201211
  2. SANVAL [Suspect]
     Active Substance: ZOLPIDEM TARTRATE
     Route: 048
     Dates: start: 20201211, end: 20201211
  3. CALIXTA [Suspect]
     Active Substance: MIRTAZAPINE
     Route: 048
     Dates: start: 20201211, end: 20201211
  4. NORMABEL [Suspect]
     Active Substance: DIAZEPAM
     Route: 048
     Dates: start: 20201211, end: 20201211

REACTIONS (4)
  - Somnolence [Unknown]
  - Intentional overdose [Unknown]
  - Diarrhoea [Unknown]
  - Suicide attempt [Unknown]

NARRATIVE: CASE EVENT DATE: 20201211
